FAERS Safety Report 6084761-4 (Version None)
Quarter: 2009Q1

REPORT INFORMATION
  Report Type: 
  Country: None (occurrence: None)
  Receive Date: 20090219
  Receipt Date: 20090210
  Transmission Date: 20090719
  Serious: Yes (Other)
  Sender: FDA-Public Use
  Company Number: JP-ALLERGAN-0901773US

PATIENT
  Sex: Male

DRUGS (5)
  1. TRIAMCINOLONE ACETONIDE UNK SUS-EYE [Suspect]
     Indication: MACULAR OEDEMA
     Dosage: 20 MG, SINGLE
     Route: 031
  2. OFLOXACIN 0.3% ONT [Concomitant]
     Indication: DRUG USE FOR UNKNOWN INDICATION
     Route: 047
  3. LEVOFLOXACIN [Concomitant]
     Indication: DRUG USE FOR UNKNOWN INDICATION
     Dosage: UNK, QID
  4. LIDOCAINE [Concomitant]
     Indication: PREOPERATIVE CARE
     Dosage: UNK, SINGLE
     Route: 047
  5. POVIDONE IODINE [Concomitant]
     Indication: PREOPERATIVE CARE
     Dosage: UNK, SINGLE
     Route: 061

REACTIONS (18)
  - CORNEAL ABSCESS [None]
  - CYST [None]
  - DIPLOPIA [None]
  - EXOPHTHALMOS [None]
  - EYE DISORDER [None]
  - EYE MOVEMENT DISORDER [None]
  - EYE PAIN [None]
  - EYELID PTOSIS [None]
  - OPTIC ATROPHY [None]
  - PERIPHLEBITIS [None]
  - RETINAL DETACHMENT [None]
  - RETINAL DISORDER [None]
  - RETINAL HAEMORRHAGE [None]
  - SCEDOSPORIUM INFECTION [None]
  - SCOTOMA [None]
  - VISUAL ACUITY REDUCED [None]
  - VISUAL FIELD DEFECT [None]
  - VITRITIS [None]
